FAERS Safety Report 13818593 (Version 4)
Quarter: 2017Q3

REPORT INFORMATION
  Report Type: Report from Study
  Country: BR (occurrence: BR)
  Receive Date: 20170801
  Receipt Date: 20170830
  Transmission Date: 20171127
  Serious: Yes (Other)
  Sender: FDA-Public Use
  Company Number: PHHY2017BR111118

PATIENT
  Sex: Female
  Weight: 66 kg

DRUGS (6)
  1. ACLASTA [Suspect]
     Active Substance: ZOLEDRONIC ACID
     Indication: OSTEOPOROSIS
     Dosage: 1 DF (5 MG/100 ML), Q12MO (2 YEARS AGO)
     Route: 042
  2. CALCIUM [Concomitant]
     Active Substance: CALCIUM
     Indication: CALCIUM DEFICIENCY
     Dosage: 1 DF, QD (15 YEARS AGO)
     Route: 048
  3. DEPURA [Concomitant]
     Active Substance: CHOLECALCIFEROL
     Indication: SUPPLEMENTATION THERAPY
     Dosage: 4 DRP, QD (START 10 YEAR AGO)
     Route: 048
  4. ACLASTA [Suspect]
     Active Substance: ZOLEDRONIC ACID
     Indication: OSTEOPENIA
  5. ESOMEX [Concomitant]
     Active Substance: ESOMEPRAZOLE MAGNESIUM
     Indication: GASTRIC DISORDER
     Dosage: 1 DF, QD (15 YEARS AGO)
     Route: 048
  6. PREDNISONE. [Concomitant]
     Active Substance: PREDNISONE
     Indication: ASTHMA
     Dosage: 1 DF, QD (START 30 YEARS AGO)
     Route: 048

REACTIONS (13)
  - Malaise [Recovered/Resolved]
  - Drug hypersensitivity [Unknown]
  - Diarrhoea [Not Recovered/Not Resolved]
  - Malaise [Not Recovered/Not Resolved]
  - Feeling abnormal [Recovering/Resolving]
  - Gastrointestinal disorder [Recovering/Resolving]
  - Asthma [Unknown]
  - Feeling cold [Recovering/Resolving]
  - Gait inability [Recovering/Resolving]
  - Pain [Not Recovered/Not Resolved]
  - Decreased appetite [Not Recovered/Not Resolved]
  - Abdominal discomfort [Recovered/Resolved]
  - Anxiety [Unknown]
